FAERS Safety Report 10264294 (Version 1)
Quarter: 2014Q2

REPORT INFORMATION
  Report Type: Spontaneous
  Country: US (occurrence: None)
  Receive Date: 20140624
  Receipt Date: 20140624
  Transmission Date: 20141212
  Serious: Yes (Other)
  Sender: FDA-Public Use
  Company Number: None

PATIENT
  Age: 60 Year
  Sex: Female
  Weight: 68.49 kg

DRUGS (1)
  1. RODAN AND FIELDS SOOTHE #3 50 ML [Suspect]
     Indication: PROPHYLAXIS AGAINST SOLAR RADIATION
     Dosage: DIME SIZED AMOUNT TWICE DAILY APPLIED TO A SURFACE, USUALLY THE SKIN
     Route: 058
     Dates: start: 20140506, end: 20140510

REACTIONS (3)
  - Sunburn [None]
  - Drug ineffective [None]
  - Product quality issue [None]
